FAERS Safety Report 24727168 (Version 1)
Quarter: 2024Q4

REPORT INFORMATION
  Report Type: Spontaneous
  Country: US (occurrence: None)
  Receive Date: 20241211
  Receipt Date: 20241211
  Transmission Date: 20250115
  Serious: Yes (Other)
  Sender: Public
  Company Number: None

PATIENT
  Age: 65 Year
  Sex: Male

DRUGS (5)
  1. TAFINLAR [Suspect]
     Active Substance: DABRAFENIB MESYLATE
     Indication: Malignant melanoma
     Dosage: FREQUENCY : TWICE A DAY;?
     Route: 048
     Dates: start: 20241115, end: 20241209
  2. MEKINIST [Suspect]
     Active Substance: TRAMETINIB DIMETHYL SULFOXIDE
     Indication: Malignant melanoma
     Dosage: FREQUENCY : DAILY;?
     Route: 048
     Dates: start: 20241115, end: 20241209
  3. OXYCODONE [Concomitant]
     Active Substance: OXYCODONE
  4. IBUPROFEN [Concomitant]
     Active Substance: IBUPROFEN
  5. PREDNISONE [Concomitant]
     Active Substance: PREDNISONE

REACTIONS (5)
  - Pyrexia [None]
  - Chills [None]
  - Fatigue [None]
  - Dehydration [None]
  - Symptom recurrence [None]

NARRATIVE: CASE EVENT DATE: 20241209
